FAERS Safety Report 5840896-X (Version None)
Quarter: 2008Q3

REPORT INFORMATION
  Report Type: 
  Country: None (occurrence: None)
  Receive Date: 20080731
  Receipt Date: 20080509
  Transmission Date: 20090109
  Serious: No
  Sender: FDA-Public Use
  Company Number: US200805002046

PATIENT
  Age: 61 Year
  Sex: Female
  Weight: 91.6 kg

DRUGS (14)
  1. BYETTA [Suspect]
     Dosage: 5 UG, EACH EVENING, SUBCUTANEOUS
     Route: 058
     Dates: start: 20080508
  2. EXENATIDE 5MCG PEN, DISPOSABLE DEVICE (EXENATIDE PEN (5MCG)) PEN,DISPO [Concomitant]
  3. GLIMEPIRIDE [Concomitant]
  4. PREMARIN (ESTROGENS CONJUGATED, MEDROGESTERONE) [Concomitant]
  5. DIOVAN HCT [Concomitant]
  6. MELOXICAM [Concomitant]
  7. SYNTHROID [Concomitant]
  8. RANOLAZINE (RANOLAZINE) [Concomitant]
  9. METOPROLOL TARTRATE [Concomitant]
  10. ISOSORBIDE MONONITRATE [Concomitant]
  11. PLAVIX [Concomitant]
  12. ASPIRIN [Concomitant]
  13. PRILOSEC [Concomitant]
  14. TRICOR [Concomitant]

REACTIONS (6)
  - ASTHENIA [None]
  - HYPERHIDROSIS [None]
  - NAUSEA [None]
  - PALPITATIONS [None]
  - PARAESTHESIA [None]
  - THIRST [None]
